FAERS Safety Report 5815587-1 (Version None)
Quarter: 2008Q3

REPORT INFORMATION
  Report Type: 
  Country: None (occurrence: None)
  Receive Date: 20080718
  Receipt Date: 20080715
  Transmission Date: 20090109
  Serious: Yes (Other)
  Sender: FDA-Public Use
  Company Number: US-AMGEN-QUU264684

PATIENT
  Sex: Female

DRUGS (2)
  1. ENBREL [Suspect]
     Indication: RHEUMATOID ARTHRITIS
     Route: 058
     Dates: start: 20040601
  2. METHOTREXATE [Concomitant]
     Route: 058

REACTIONS (5)
  - MEMORY IMPAIRMENT [None]
  - MYALGIA [None]
  - SOMNOLENCE [None]
  - SYSTEMIC LUPUS ERYTHEMATOSUS [None]
  - VITAMIN D DEFICIENCY [None]
